FAERS Safety Report 10410698 (Version 2)
Quarter: 2014Q3

REPORT INFORMATION
  Report Type: Report from Study
  Country: US (occurrence: KR)
  Receive Date: 20140826
  Receipt Date: 20140826
  Transmission Date: 20150326
  Serious: Yes (Death, Other)
  Sender: FDA-Public Use
  Company Number: KR-FRI-1000059669

PATIENT
  Age: 33 Year
  Sex: Male
  Weight: 82.7 kg

DRUGS (6)
  1. MAGMIL [Concomitant]
     Active Substance: MAGNESIUM HYDROXIDE
     Indication: CONSTIPATION
     Dates: start: 20130110, end: 20130224
  2. LORAZEPAM. [Concomitant]
     Active Substance: LORAZEPAM
     Dates: start: 20120910, end: 20130225
  3. ASENAPINE [Suspect]
     Active Substance: ASENAPINE
     Indication: SCHIZOPHRENIA
     Dosage: 20 MG
     Route: 060
     Dates: end: 20130225
  4. ASENAPINE [Suspect]
     Active Substance: ASENAPINE
     Dates: start: 20120521, end: 20120702
  5. BENZTROPINE MESYLATE. [Concomitant]
     Active Substance: BENZTROPINE MESYLATE
     Dates: start: 20120718, end: 20130225
  6. DOXYLAMINE SUCCINATE [Concomitant]
     Active Substance: DOXYLAMINE SUCCINATE
     Dates: start: 20121226, end: 20121230

REACTIONS (2)
  - Depressed mood [Fatal]
  - Completed suicide [Fatal]

NARRATIVE: CASE EVENT DATE: 20121004
